FAERS Safety Report 24782956 (Version 1)
Quarter: 2024Q4

REPORT INFORMATION
  Report Type: Spontaneous
  Country: US (occurrence: US)
  Receive Date: 20241227
  Receipt Date: 20241227
  Transmission Date: 20250114
  Serious: Yes (Other)
  Sender: RANBAXY
  Company Number: US-SUN PHARMACEUTICAL INDUSTRIES LTD-2024R1-446759

PATIENT
  Age: 47 Year
  Sex: Male

DRUGS (4)
  1. PREDNISONE [Suspect]
     Active Substance: PREDNISONE
     Indication: Sarcoidosis
     Dosage: 20 MILLIGRAM, DAILY
     Route: 048
  2. PREDNISONE [Suspect]
     Active Substance: PREDNISONE
     Indication: Metabolic dysfunction-associated liver disease
  3. ADALIMUMAB [Concomitant]
     Active Substance: ADALIMUMAB
     Indication: Sarcoidosis
     Dosage: UNK (40 MG EVERY 2 WEEKS)
     Route: 058
  4. ADALIMUMAB [Concomitant]
     Active Substance: ADALIMUMAB
     Indication: Metabolic dysfunction-associated liver disease

REACTIONS (1)
  - Disease recurrence [Unknown]
